FAERS Safety Report 7449683-2 (Version None)
Quarter: 2011Q2

REPORT INFORMATION
  Report Type: 
  Country: None (occurrence: None)
  Receive Date: 20110421
  Receipt Date: 20110413
  Transmission Date: 20111010
  Serious: Yes (Hospitalization)
  Sender: FDA-Public Use
  Company Number: 888340

PATIENT
  Age: 46 Year
  Sex: Female

DRUGS (2)
  1. CARBOPLATIN [Suspect]
     Indication: SMALL CELL LUNG CANCER STAGE UNSPECIFIED
     Dosage: AUC 5, EVERY THREE WEEKS,
  2. ETOPOSIDE [Suspect]
     Indication: NEUTROPENIC COLITIS
     Dosage: 120MG/M^2

REACTIONS (12)
  - ASCITES [None]
  - BLOOD SODIUM DECREASED [None]
  - PSEUDOMEMBRANOUS COLITIS [None]
  - BLOOD CULTURE POSITIVE [None]
  - BLOOD DISORDER [None]
  - HYPOTENSION [None]
  - GASTROINTESTINAL NECROSIS [None]
  - TACHYCARDIA [None]
  - NEUTROPENIC COLITIS [None]
  - THROMBOCYTOPENIA [None]
  - ESCHERICHIA INFECTION [None]
  - KLEBSIELLA INFECTION [None]
